FAERS Safety Report 23442575 (Version 1)
Quarter: 2024Q1

REPORT INFORMATION
  Report Type: Spontaneous
  Country: US (occurrence: US)
  Receive Date: 20240125
  Receipt Date: 20240125
  Transmission Date: 20240410
  Serious: Yes (Other)
  Sender: FDA-Public Use
  Company Number: US-BIOVITRUM-2024-US-001218

PATIENT
  Age: 58 Year
  Sex: Male

DRUGS (1)
  1. KINERET [Suspect]
     Active Substance: ANAKINRA
     Indication: Rheumatoid arthritis
     Dosage: 100 MG DAILY
     Dates: start: 2019

REACTIONS (5)
  - Neutropenia [Not Recovered/Not Resolved]
  - Splenomegaly [Unknown]
  - Gastritis [Unknown]
  - Gastric varices [Unknown]
  - Platelet count decreased [Not Recovered/Not Resolved]
